FAERS Safety Report 9378078 (Version 2)
Quarter: 2013Q3

REPORT INFORMATION
  Report Type: Spontaneous
  Country: None (occurrence: BR)
  Receive Date: 20130701
  Receipt Date: 20130723
  Transmission Date: 20140515
  Serious: Yes (Other)
  Sender: FDA-Public Use
  Company Number: BR-ALLERGAN-1308510US

PATIENT
  Age: 87 Year
  Sex: Female
  Weight: 65 kg

DRUGS (12)
  1. GANFORT? [Suspect]
     Indication: GLAUCOMA
     Dosage: UNKNOWN DOSE AT NIGHT
     Route: 047
  2. COMBIGAN[TM] [Concomitant]
     Indication: GLAUCOMA
     Route: 047
  3. COMPRESS [Concomitant]
     Indication: GLAUCOMA
     Route: 047
  4. LOSARTANA POTASSICA [Concomitant]
     Indication: HYPERTENSION
     Dosage: 50 MG, BID
  5. ESPIRONOLACTONA [Concomitant]
     Indication: CARDIAC DISORDER
     Dosage: 50 MG, BID
     Route: 048
  6. DIGOXINA [Concomitant]
     Indication: LABYRINTHITIS
     Dosage: 0.25 MG, QD
  7. BETADINE [Concomitant]
     Indication: LABYRINTHITIS
     Dosage: 16 MG, UNK
  8. DIIDROERGOCRISTINA [Concomitant]
     Indication: LABYRINTHITIS
     Dosage: 6 MG, QD
  9. GILBENCLAMIDA [Concomitant]
     Indication: DIABETES MELLITUS
     Dosage: 5 MG, BID
  10. HALOXIFENO [Concomitant]
     Indication: PRODUCT USED FOR UNKNOWN INDICATION
     Dosage: 60 MG, QD
  11. CLOPIDOGREL [Concomitant]
     Indication: CAROTID ARTERY OCCLUSION
     Dosage: 75 MG, QD
  12. OCUPRESS [Concomitant]

REACTIONS (5)
  - Corneal opacity [Unknown]
  - Keratitis [Unknown]
  - Cataract [Unknown]
  - Hyperaemia [Unknown]
  - Drug ineffective [Unknown]
